FAERS Safety Report 5289063-1 (Version None)
Quarter: 2007Q1

REPORT INFORMATION
  Report Type: 
  Country: None (occurrence: None)
  Receive Date: 20070118
  Receipt Date: 20061108
  Transmission Date: 20070707
  Serious: Yes (Other)
  Sender: FDA-Public Use
  Company Number: HQWYE080310NOV06

PATIENT
  Age: 74 Year
  Sex: Female
  Weight: 57.2 kg

DRUGS (3)
  1. ADVIL PM [Suspect]
     Indication: INSOMNIA
     Dosage: 2 CAPLETS DAILY, ORAL
     Route: 048
     Dates: start: 20061103, end: 20061106
  2. ADVIL PM [Suspect]
     Indication: PAIN
     Dosage: 2 CAPLETS DAILY, ORAL
     Route: 048
     Dates: start: 20061103, end: 20061106
  3. LISINOPRIL HYDROCHLOROTHIAZIDE (LISINOPRIL HYDROCHLOROTHIAZIDE) [Concomitant]

REACTIONS (3)
  - ANXIETY [None]
  - DRUG EFFECT DECREASED [None]
  - FEELING JITTERY [None]
